FAERS Safety Report 6100345-3 (Version None)
Quarter: 2009Q1

REPORT INFORMATION
  Report Type: 
  Country: None (occurrence: None)
  Receive Date: 20090303
  Receipt Date: 20090220
  Transmission Date: 20090719
  Serious: Yes (Other)
  Sender: FDA-Public Use
  Company Number: US-ELI_LILLY_AND_COMPANY-US200902005726

PATIENT
  Sex: Female

DRUGS (1)
  1. CYMBALTA [Suspect]
     Indication: GLUCOSE TOLERANCE IMPAIRED
     Dosage: 60 MG, UNK
     Route: 048
     Dates: start: 20070101

REACTIONS (6)
  - ABASIA [None]
  - APHASIA [None]
  - DIABETES MELLITUS [None]
  - DRUG WITHDRAWAL SYNDROME [None]
  - DYSSTASIA [None]
  - MALAISE [None]
